FAERS Safety Report 5149927-6 (Version None)
Quarter: 2006Q4

REPORT INFORMATION
  Report Type: 
  Country: None (occurrence: None)
  Receive Date: 20061108
  Receipt Date: 20060830
  Transmission Date: 20070319
  Serious: Yes (Hospitalization, Other)
  Sender: FDA-Public Use
  Company Number: 2006108513

PATIENT
  Age: 58 Year
  Sex: Female

DRUGS (7)
  1. BEXTRA [Suspect]
     Dosage: 10 MG; SEE IMAGE ORAL
     Route: 048
     Dates: start: 20020628, end: 20020824
  2. BEXTRA [Suspect]
     Dosage: 10 MG; SEE IMAGE ORAL
     Route: 048
     Dates: start: 20020914
  3. AMITRIPTYLINE HCL [Concomitant]
  4. ISOSORBIDE (ISOSORBIDE) [Concomitant]
  5. LANOXIN [Concomitant]
  6. POTASSIUM (POTASSIUM) [Concomitant]
  7. OXYBUTYNIN CHLORIDE [Concomitant]

REACTIONS (1)
  - BACK PAIN [None]
